FAERS Safety Report 16994282 (Version 1)
Quarter: 2019Q4

REPORT INFORMATION
  Report Type: Spontaneous
  Country: US (occurrence: US)
  Receive Date: 20191105
  Receipt Date: 20191105
  Transmission Date: 20200122
  Serious: Yes (Life-Threatening, Hospitalization, Other)
  Sender: FDA-Public Use
  Company Number: US-SCIEGEN PHARMACEUTICALS INC-2019SCILIT00329

PATIENT
  Age: 20 Year
  Sex: Female

DRUGS (1)
  1. LAMOTRIGINE TABLETS [Suspect]
     Active Substance: LAMOTRIGINE

REACTIONS (9)
  - Pyrexia [Unknown]
  - Toxicity to various agents [Unknown]
  - Rash macular [Unknown]
  - Chills [Unknown]
  - Myalgia [Unknown]
  - Depressed level of consciousness [Unknown]
  - Hepatic enzyme increased [Recovering/Resolving]
  - Back pain [Unknown]
  - Intentional overdose [Unknown]
